FAERS Safety Report 12305841 (Version 1)
Quarter: 2016Q2

REPORT INFORMATION
  Report Type: Spontaneous
  Country: US (occurrence: US)
  Receive Date: 20160426
  Receipt Date: 20160426
  Transmission Date: 20160815
  Serious: No
  Sender: FDA-Public Use
  Company Number: US-ELI_LILLY_AND_COMPANY-US201604000317

PATIENT
  Sex: Female

DRUGS (1)
  1. HUMALOG [Suspect]
     Active Substance: INSULIN LISPRO
     Indication: TYPE 2 DIABETES MELLITUS
     Dosage: UNK, UNKNOWN
     Route: 065
     Dates: start: 20160315

REACTIONS (5)
  - Injection site pain [Unknown]
  - Peripheral swelling [Unknown]
  - Drug dose omission [Unknown]
  - Blood glucose increased [Unknown]
  - Injury associated with device [Unknown]

NARRATIVE: CASE EVENT DATE: 20160329
